FAERS Safety Report 7656346-7 (Version None)
Quarter: 2011Q3

REPORT INFORMATION
  Report Type: 
  Country: None (occurrence: None)
  Receive Date: 20110804
  Receipt Date: 20110715
  Transmission Date: 20111222
  Serious: Yes (Hospitalization, Disabling)
  Sender: FDA-Public Use
  Company Number: US-GLAXOSMITHKLINE-A0848142A

PATIENT
  Sex: Male
  Weight: 98 kg

DRUGS (8)
  1. REMERON [Concomitant]
  2. SEROQUEL [Concomitant]
  3. AVANDIA [Suspect]
     Indication: DIABETES MELLITUS
     Dosage: 4MG TWICE PER DAY
     Route: 048
     Dates: start: 20020101
  4. GLUCOTROL [Concomitant]
  5. NEURONTIN [Concomitant]
  6. METOPROLOL TARTRATE [Concomitant]
  7. MAXZIDE [Concomitant]
  8. ACARBOSE [Concomitant]

REACTIONS (3)
  - CEREBROVASCULAR ACCIDENT [None]
  - CARDIAC FAILURE CONGESTIVE [None]
  - MYOCARDIAL ISCHAEMIA [None]
